FAERS Safety Report 22385494 (Version 1)
Quarter: 2023Q2

REPORT INFORMATION
  Report Type: Spontaneous
  Country: US (occurrence: US)
  Receive Date: 20230530
  Receipt Date: 20230530
  Transmission Date: 20230721
  Serious: No
  Sender: FDA-Public Use
  Company Number: US-DSJP-DSU-2023-120710

PATIENT
  Age: 73 Year
  Sex: Male

DRUGS (2)
  1. TRIBENZOR [Suspect]
     Active Substance: AMLODIPINE BESYLATE\HYDROCHLOROTHIAZIDE\OLMESARTAN MEDOXOMIL
     Indication: Hypertension
     Dosage: 40 MG, QD (FOR 5-10 YEARS)
     Route: 065
  2. TRIBENZOR [Suspect]
     Active Substance: AMLODIPINE BESYLATE\HYDROCHLOROTHIAZIDE\OLMESARTAN MEDOXOMIL
     Indication: Gastrooesophageal reflux disease

REACTIONS (1)
  - Collagenous gastritis [Recovered/Resolved]
